FAERS Safety Report 9296812 (Version 1)
Quarter: 2013Q2

REPORT INFORMATION
  Report Type: Spontaneous
  Country: IN (occurrence: IN)
  Receive Date: 20130517
  Receipt Date: 20130517
  Transmission Date: 20140414
  Serious: Yes (Other)
  Sender: FDA-Public Use
  Company Number: IN-009507513-1305IND009369

PATIENT
  Age: 45 Year
  Sex: 0

DRUGS (2)
  1. VIRAFERONPEG [Suspect]
     Dosage: 80 MICROGRAM, UNK
  2. REBETOL [Suspect]

REACTIONS (2)
  - Haematemesis [Unknown]
  - Platelet count decreased [Unknown]
